FAERS Safety Report 13937114 (Version 2)
Quarter: 2017Q4

REPORT INFORMATION
  Report Type: Spontaneous
  Country: US (occurrence: US)
  Receive Date: 20170905
  Receipt Date: 20171013
  Transmission Date: 20180320
  Serious: No
  Sender: FDA-Public Use
  Company Number: US-PFIZER INC-2017378148

PATIENT
  Age: 70 Year
  Sex: Female

DRUGS (1)
  1. XELJANZ XR [Suspect]
     Active Substance: TOFACITINIB CITRATE
     Indication: RHEUMATOID ARTHRITIS
     Dosage: 11 MG, ONCE DAILY (IN THE MORNING, SOMETIMES IN THE EVENING INSTEAD)

REACTIONS (3)
  - Inappropriate schedule of drug administration [Unknown]
  - Pain in extremity [Unknown]
  - Sensitivity to weather change [Unknown]
